FAERS Safety Report 12151821 (Version 2)
Quarter: 2016Q1

REPORT INFORMATION
  Report Type: Report from Study
  Country: BE (occurrence: BE)
  Receive Date: 20160304
  Receipt Date: 20160314
  Transmission Date: 20160526
  Serious: Yes (Death)
  Sender: FDA-Public Use
  Company Number: BE-ABBVIE-15P-013-1373123-00

PATIENT
  Age: 72 Year
  Sex: Male
  Weight: 59.5 kg

DRUGS (9)
  1. DUODOPA [Suspect]
     Active Substance: CARBIDOPA\LEVODOPA
     Indication: PARKINSON^S DISEASE
     Route: 050
     Dates: start: 20080811, end: 20080814
  2. DUODOPA [Suspect]
     Active Substance: CARBIDOPA\LEVODOPA
     Dosage: AM: 3ML; CD: 4.9ML/H FOR 16 HRS; ND: 4.7ML/H FOR 8HRS; ED: 3ML
     Route: 050
     Dates: start: 20140916, end: 20150908
  3. DUODOPA [Suspect]
     Active Substance: CARBIDOPA\LEVODOPA
     Dosage: AM: 13ML; CD: 4.5ML/H FOR 16 HRS; ED: 2.5ML
     Route: 050
     Dates: start: 20080814, end: 20090630
  4. DUODOPA [Suspect]
     Active Substance: CARBIDOPA\LEVODOPA
     Dosage: DOSAGES CONTINUOUSLY MONITORED AND ADJUSTED
     Route: 050
     Dates: start: 20090630, end: 20140916
  5. EXELON [Concomitant]
     Active Substance: RIVASTIGMINE TARTRATE
     Indication: PRODUCT USED FOR UNKNOWN INDICATION
  6. DUODOPA [Suspect]
     Active Substance: CARBIDOPA\LEVODOPA
     Dosage: AM DOSE=3ML, CD=5.2ML/H FOR 16HRS AND ED=3ML
     Route: 050
     Dates: start: 20150908, end: 20160229
  7. IMODIUM [Concomitant]
     Active Substance: LOPERAMIDE HYDROCHLORIDE
     Indication: PRODUCT USED FOR UNKNOWN INDICATION
  8. COMTAN [Concomitant]
     Active Substance: ENTACAPONE
     Indication: PARKINSON^S DISEASE
     Route: 048
  9. LYSANXIA [Concomitant]
     Active Substance: PRAZEPAM
     Indication: PRODUCT USED FOR UNKNOWN INDICATION
     Route: 048
     Dates: end: 20160229

REACTIONS (11)
  - Asthenia [Unknown]
  - On and off phenomenon [Unknown]
  - Speech disorder [Unknown]
  - Bedridden [Not Recovered/Not Resolved]
  - General physical health deterioration [Not Recovered/Not Resolved]
  - Drug effect incomplete [Unknown]
  - Cardiac arrest [Fatal]
  - Pyrexia [Unknown]
  - Muscle rigidity [Recovered/Resolved]
  - Dyskinesia [Unknown]
  - Urinary tract infection [Fatal]

NARRATIVE: CASE EVENT DATE: 20160226
